FAERS Safety Report 10402480 (Version 4)
Quarter: 2014Q4

REPORT INFORMATION
  Report Type: Spontaneous
  Country: JP (occurrence: JP)
  Receive Date: 20140822
  Receipt Date: 20141017
  Transmission Date: 20150528
  Serious: Yes (Hospitalization, Other)
  Sender: FDA-Public Use
  Company Number: JP-PFIZER INC-2014233637

PATIENT
  Age: 44 Year
  Sex: Male
  Weight: 70 kg

DRUGS (7)
  1. CYMBALTA [Concomitant]
     Active Substance: DULOXETINE HYDROCHLORIDE
     Indication: DEPRESSED MOOD
     Dosage: 20 MG, DAILY
     Dates: end: 20130806
  2. LIPITOR [Suspect]
     Active Substance: ATORVASTATIN CALCIUM
     Indication: HYPERCHOLESTEROLAEMIA
     Dosage: 10 MG, 1X/DAY
     Route: 048
     Dates: start: 20130305, end: 20130930
  3. ABILIFY [Suspect]
     Active Substance: ARIPIPRAZOLE
     Indication: DEPRESSION
     Dosage: 6 MG, 1X/DAY
     Route: 048
     Dates: start: 20130819, end: 20130918
  4. ABILIFY [Suspect]
     Active Substance: ARIPIPRAZOLE
     Indication: DEPRESSION
     Dosage: 3 MG, 1X/DAY
     Route: 048
     Dates: start: 20130806, end: 20130818
  5. MYSLEE [Concomitant]
     Active Substance: ZOLPIDEM TARTRATE
     Indication: INSOMNIA
     Dosage: UNK
     Dates: start: 20121204
  6. JZOLOFT [Concomitant]
     Active Substance: SERTRALINE HYDROCHLORIDE
     Indication: DEPRESSED MOOD
     Dosage: UNK
     Dates: start: 20100412
  7. SELENICA-R [Concomitant]
     Active Substance: SELENIUM
     Indication: HEADACHE
     Dosage: UNK MG, UNK
     Route: 048
     Dates: start: 20100128

REACTIONS (6)
  - Drug ineffective [Unknown]
  - Dyslalia [Unknown]
  - Diabetic ketoacidosis [Recovered/Resolved]
  - Gait disturbance [Unknown]
  - Type 1 diabetes mellitus [Unknown]
  - Depressed level of consciousness [Unknown]

NARRATIVE: CASE EVENT DATE: 2013
